FAERS Safety Report 17106260 (Version 3)
Quarter: 2020Q1

REPORT INFORMATION
  Report Type: Spontaneous
  Country: US (occurrence: US)
  Receive Date: 20191203
  Receipt Date: 20200106
  Transmission Date: 20200409
  Serious: No
  Sender: FDA-Public Use
  Company Number: US-DSJP-DSU-2019-145921

PATIENT

DRUGS (2)
  1. TURALIO [Suspect]
     Active Substance: PEXIDARTINIB HYDROCHLORIDE
     Dosage: 400 MG, BID
     Route: 048
     Dates: start: 20191210
  2. TURALIO [Suspect]
     Active Substance: PEXIDARTINIB HYDROCHLORIDE
     Indication: SYNOVITIS
     Dosage: 200 MG, QD
     Route: 048
     Dates: start: 20191109, end: 20191209

REACTIONS (16)
  - Diarrhoea [Unknown]
  - Dry eye [Not Recovered/Not Resolved]
  - Skin hypopigmentation [Unknown]
  - Constipation [Unknown]
  - Off label use [Unknown]
  - Fatigue [Unknown]
  - Dizziness [Recovered/Resolved]
  - Vaginal haemorrhage [Unknown]
  - Vulvovaginal dryness [Unknown]
  - Nausea [Unknown]
  - Periorbital swelling [Unknown]
  - Blood pressure increased [Unknown]
  - Arthralgia [Unknown]
  - Dry skin [Unknown]
  - Dysgeusia [Unknown]
  - Pruritus [Unknown]

NARRATIVE: CASE EVENT DATE: 2019
